FAERS Safety Report 21032450 (Version 3)
Quarter: 2022Q3

REPORT INFORMATION
  Report Type: Other
  Country: JP (occurrence: JP)
  Receive Date: 20220701
  Receipt Date: 20220907
  Transmission Date: 20221027
  Serious: Yes (Other)
  Sender: FDA-Public Use
  Company Number: JP-CHUGAI-2022024527

PATIENT
  Age: 85 Year
  Sex: Female
  Weight: 40 kg

DRUGS (6)
  1. ACTEMRA [Suspect]
     Active Substance: TOCILIZUMAB
     Indication: Still^s disease
     Dosage: 320 MILLIGRAM, ONCE/2WEEKS
     Route: 041
     Dates: start: 20211118
  2. NEORAL [Suspect]
     Active Substance: CYCLOSPORINE
     Indication: Still^s disease
     Dosage: 50 MILLIGRAM, BID
     Route: 048
     Dates: start: 20211120, end: 20211123
  3. NEORAL [Suspect]
     Active Substance: CYCLOSPORINE
     Dosage: 50 MILLIGRAM, BID
     Route: 048
     Dates: start: 20211201
  4. CYCLOSPORINE [Suspect]
     Active Substance: CYCLOSPORINE
     Indication: Still^s disease
     Dosage: 50 MILLIGRAM, BID
     Route: 042
     Dates: start: 20211124, end: 20211130
  5. PREDNISOLONE SODIUM SUCCINATE [Suspect]
     Active Substance: PREDNISOLONE SODIUM SUCCINATE
     Indication: Still^s disease
     Dosage: 40 MILLIGRAM, QD
     Route: 042
     Dates: start: 20211112, end: 20211124
  6. SOLU-MEDROL [Suspect]
     Active Substance: METHYLPREDNISOLONE SODIUM SUCCINATE
     Indication: Still^s disease
     Dosage: 80 MILLIGRAM, QD
     Route: 042
     Dates: start: 20211125, end: 20211202

REACTIONS (2)
  - Oesophageal candidiasis [Recovered/Resolved]
  - Cytomegalovirus test positive [Recovered/Resolved]

NARRATIVE: CASE EVENT DATE: 20211129
